FAERS Safety Report 21930313 (Version 3)
Quarter: 2023Q1

REPORT INFORMATION
  Report Type: Other
  Country: AU (occurrence: AU)
  Receive Date: 20230131
  Receipt Date: 20230313
  Transmission Date: 20230418
  Serious: Yes (Other)
  Sender: FDA-Public Use
  Company Number: AU-002147023-NVSC2023AU016389

PATIENT
  Age: 56 Year
  Sex: Male

DRUGS (2)
  1. LUCENTIS [Suspect]
     Active Substance: RANIBIZUMAB
     Indication: Age-related macular degeneration
     Dosage: 0.5 MG, QMO (LEFT EYE) (EVERY 1-3 MONTHS)
     Route: 065
  2. LUCENTIS [Suspect]
     Active Substance: RANIBIZUMAB
     Indication: Central serous chorioretinopathy
     Dosage: 1.65 MG/O.165 ML (1 DOSE EVERY 4 WEEKS FOR 12 WEEKS)
     Route: 065

REACTIONS (2)
  - Subretinal fluid [Unknown]
  - Central serous chorioretinopathy [Unknown]
